FAERS Safety Report 8262034-9 (Version None)
Quarter: 2012Q2

REPORT INFORMATION
  Report Type: 
  Country: None (occurrence: None)
  Receive Date: 20120402
  Receipt Date: 20120323
  Transmission Date: 20120825
  Serious: Yes (Hospitalization)
  Sender: FDA-Public Use
  Company Number: 7114930

PATIENT
  Age: 62 Year
  Sex: Female

DRUGS (3)
  1. LEVOTHYROXINE SODIUM [Suspect]
     Indication: HYPOTHYROIDISM
     Dosage: ORAL
     Route: 048
     Dates: start: 20120101, end: 20120111
  2. NEBIVOLOL (NEBIVOLOL) (NEBIVOLOL) [Concomitant]
  3. IRBESARTAN [Concomitant]

REACTIONS (10)
  - BREAST DISORDER [None]
  - REACTION TO DRUG EXCIPIENTS [None]
  - ARTHRALGIA [None]
  - SKIN PLAQUE [None]
  - THERMAL BURN [None]
  - ASTHENIA [None]
  - WEIGHT INCREASED [None]
  - RASH MACULO-PAPULAR [None]
  - PRURITUS [None]
  - MUSCLE SPASMS [None]
